FAERS Safety Report 18384134 (Version 1)
Quarter: 2020Q4

REPORT INFORMATION
  Report Type: Report from Study
  Country: None (occurrence: LB)
  Receive Date: 20201015
  Receipt Date: 20201015
  Transmission Date: 20210114
  Serious: Yes (Death, Hospitalization, Other)
  Sender: FDA-Public Use
  Company Number: LB-ABBVIE-20K-093-3608724-00

PATIENT
  Age: 71 Year
  Sex: Male
  Weight: 70 kg

DRUGS (4)
  1. HUMIRA [Suspect]
     Active Substance: ADALIMUMAB
     Indication: CROHN^S DISEASE
     Dosage: CAREGIVER DID NOT RECALL THE LOADING DOSE
     Route: 058
     Dates: start: 201508, end: 201508
  2. HUMIRA [Suspect]
     Active Substance: ADALIMUMAB
     Route: 058
     Dates: start: 201509, end: 201712
  3. HUMIRA [Suspect]
     Active Substance: ADALIMUMAB
     Indication: CROHN^S DISEASE
     Route: 058
     Dates: start: 201907, end: 20201002
  4. HUMIRA [Suspect]
     Active Substance: ADALIMUMAB
     Route: 058
     Dates: start: 201802, end: 201907

REACTIONS (6)
  - Gastrointestinal fistula [Fatal]
  - Septic shock [Fatal]
  - Abdominal distension [Fatal]
  - Intestinal operation [Fatal]
  - Infection [Fatal]
  - Anaemia [Fatal]

NARRATIVE: CASE EVENT DATE: 202002
